FAERS Safety Report 8788430 (Version 1)
Quarter: 2012Q4

REPORT INFORMATION
  Report Type: 
  Country: US (occurrence: US)
  Receive Date: 20120914
  Receipt Date: 20120914
  Transmission Date: 20130627
  Serious: No
  Sender: FDA-Public Use
  Company Number: US-VERTEX PHARMACEUTICAL INC.-AE-2012-011873

PATIENT
  Age: 50 Year
  Sex: Female
  Weight: 69.55 kg

DRUGS (5)
  1. INCIVEK [Suspect]
     Indication: HEPATITIS C
     Route: 048
     Dates: start: 201207
  2. PEGINTERFERON ALFA 2B [Concomitant]
     Indication: HEPATITIS C
     Dates: start: 201207
  3. RIBAVIRIN [Concomitant]
     Indication: HEPATITIS C
     Dates: start: 201207
  4. SYNTHROID [Concomitant]
     Indication: THYROID DISORDER
  5. AMBIEN [Concomitant]
     Indication: SLEEP DISORDER

REACTIONS (3)
  - Urinary retention [Not Recovered/Not Resolved]
  - Fluid retention [Not Recovered/Not Resolved]
  - Weight increased [Unknown]
